FAERS Safety Report 6923040-7 (Version None)
Quarter: 2010Q3

REPORT INFORMATION
  Report Type: 
  Country: None (occurrence: None)
  Receive Date: 20100813
  Receipt Date: 20100803
  Transmission Date: 20110219
  Serious: Yes (Other)
  Sender: FDA-Public Use
  Company Number: US-PURDUE-USA-2010-0045472

PATIENT
  Sex: Male

DRUGS (2)
  1. OXYCONTIN [Suspect]
     Indication: SURGERY
     Dosage: 30 MG, TID
  2. OXYCONTIN [Suspect]
     Indication: PAIN

REACTIONS (2)
  - PAIN [None]
  - SUICIDE ATTEMPT [None]
